FAERS Safety Report 12723837 (Version 2)
Quarter: 2016Q4

REPORT INFORMATION
  Report Type: Report from Study
  Country: US (occurrence: US)
  Receive Date: 20160908
  Receipt Date: 20161212
  Transmission Date: 20170207
  Serious: Yes (Hospitalization, Other)
  Sender: FDA-Public Use
  Company Number: US-BAYER-2016-152149

PATIENT
  Age: 71 Year
  Sex: Male
  Weight: 106.58 kg

DRUGS (5)
  1. ADEMPAS [Suspect]
     Active Substance: RIOCIGUAT
     Indication: PULMONARY ARTERIAL HYPERTENSION
     Dosage: UNK
     Route: 048
     Dates: start: 20160617, end: 20160913
  2. ADEMPAS [Suspect]
     Active Substance: RIOCIGUAT
     Indication: PULMONARY ARTERIAL HYPERTENSION
     Dosage: 1.5 MG, TID
     Route: 048
  3. ADEMPAS [Suspect]
     Active Substance: RIOCIGUAT
     Indication: PULMONARY ARTERIAL HYPERTENSION
     Dosage: 2 MG, TID
     Route: 048
  4. OPSUMIT [Concomitant]
     Active Substance: MACITENTAN
     Dosage: UNK
  5. VENTAVIS [Concomitant]
     Active Substance: ILOPROST
     Dosage: UNK

REACTIONS (15)
  - Large intestinal obstruction [None]
  - Epistaxis [None]
  - Fatigue [None]
  - Sinus congestion [None]
  - Oedema peripheral [None]
  - Pain in jaw [None]
  - Back pain [None]
  - Abdominal distension [None]
  - Dizziness [None]
  - Ascites [None]
  - Constipation [None]
  - Paraesthesia [None]
  - Flushing [None]
  - Nausea [None]
  - Neck pain [None]
